FAERS Safety Report 7757748-0 (Version None)
Quarter: 2011Q3

REPORT INFORMATION
  Report Type: 
  Country: None (occurrence: None)
  Receive Date: 20110917
  Receipt Date: 20110905
  Transmission Date: 20111222
  Serious: Yes (Death)
  Sender: FDA-Public Use
  Company Number: HK-MYLANLABS-2011S1018916

PATIENT
  Age: 37 Year
  Sex: Female

DRUGS (4)
  1. CHLOROQUINE [Suspect]
     Indication: OVERDOSE
     Dosage: 25 TABLETS OF CHLOROQUINE 250MG
     Dates: start: 20090801
  2. HYDROXYCHLOROQUINE SULFATE [Suspect]
     Indication: OVERDOSE
     Dosage: 30 TABLETS OF HYDROXYCHLOROQUINE 200MG
     Dates: start: 20090801
  3. HYDROXYCHLOROQUINE SULFATE [Suspect]
     Indication: SUICIDE ATTEMPT
     Dosage: 30 TABLETS OF HYDROXYCHLOROQUINE 200MG
     Dates: start: 20090801
  4. CHLOROQUINE [Suspect]
     Indication: SUICIDE ATTEMPT
     Dosage: 25 TABLETS OF CHLOROQUINE 250MG
     Dates: start: 20090801

REACTIONS (9)
  - SHOCK [None]
  - TORSADE DE POINTES [None]
  - ELECTROCARDIOGRAM QRS COMPLEX PROLONGED [None]
  - INTENTIONAL OVERDOSE [None]
  - COMA [None]
  - SINUS TACHYCARDIA [None]
  - CARDIAC ARREST [None]
  - COMPLETED SUICIDE [None]
  - HYPOTENSION [None]
